FAERS Safety Report 15245499 (Version 1)
Quarter: 2018Q3

REPORT INFORMATION
  Report Type: Spontaneous
  Country: GB (occurrence: GB)
  Receive Date: 20180806
  Receipt Date: 20180806
  Transmission Date: 20181010
  Serious: Yes (Other)
  Sender: FDA-Public Use
  Company Number: PHHY2018GB060320

PATIENT
  Age: 7 Year
  Sex: Male
  Weight: 56.4 kg

DRUGS (2)
  1. VORICONAZOLE. [Suspect]
     Active Substance: VORICONAZOLE
     Indication: BRONCHOPULMONARY ASPERGILLOSIS
     Route: 048
  2. ITRACONAZOLE. [Suspect]
     Active Substance: ITRACONAZOLE
     Indication: BRONCHOPULMONARY ASPERGILLOSIS
     Dosage: 0.5 DF (200 MG), UNK
     Route: 048

REACTIONS (3)
  - Neuropathy peripheral [Unknown]
  - Joint swelling [Unknown]
  - Visual impairment [Unknown]
